FAERS Safety Report 5958538-1 (Version None)
Quarter: 2008Q4

REPORT INFORMATION
  Report Type: 
  Country: None (occurrence: None)
  Receive Date: 20081119
  Receipt Date: 20081114
  Transmission Date: 20090506
  Serious: Yes (Other)
  Sender: FDA-Public Use
  Company Number: PHEH2008US10321

PATIENT
  Sex: Female

DRUGS (8)
  1. VOLTAREN [Suspect]
     Indication: OSTEOARTHRITIS
     Dosage: UNK
     Dates: start: 19880101
  2. VOLTAREN EMULGEL ^NOVARTIS^ [Concomitant]
     Indication: ARTHRITIS
  3. METHOTREXATE [Concomitant]
  4. ADALIMUMAB [Concomitant]
  5. PREDNISONE TAB [Concomitant]
  6. AMLODIPINE [Concomitant]
  7. LOSARTAN POTASSIUM [Concomitant]
  8. ESCITALOPRAM [Concomitant]

REACTIONS (7)
  - ARTHROPATHY [None]
  - ASTHENIA [None]
  - CHROMATURIA [None]
  - CONSTIPATION [None]
  - HIP ARTHROPLASTY [None]
  - LETHARGY [None]
  - LIVER FUNCTION TEST ABNORMAL [None]
